FAERS Safety Report 21830063 (Version 1)
Quarter: 2023Q1

REPORT INFORMATION
  Report Type: Spontaneous
  Country: GB (occurrence: GB)
  Receive Date: 20230106
  Receipt Date: 20230106
  Transmission Date: 20230418
  Serious: Yes (Hospitalization)
  Sender: FDA-Public Use
  Company Number: None

PATIENT

DRUGS (3)
  1. ATORVASTATIN [Suspect]
     Active Substance: ATORVASTATIN
     Indication: Product used for unknown indication
     Dosage: AT NIGHT
     Route: 065
  2. FLUOXETINE [Suspect]
     Active Substance: FLUOXETINE HYDROCHLORIDE
     Indication: Product used for unknown indication
     Dosage: AT NIGHT
     Route: 065
  3. HERBALS [Suspect]
     Active Substance: HERBALS
     Indication: Product used for unknown indication
     Dosage: HERBAL MEDICINE CONTAINING: ?GINGSENG, GINKGO, TRIBULUS TERRESTRIS, MACA EXTRACT AND BEETROOT
     Route: 065

REACTIONS (3)
  - Cholelithiasis [Unknown]
  - Abdominal pain upper [Recovered/Resolved with Sequelae]
  - Liver function test abnormal [Unknown]

NARRATIVE: CASE EVENT DATE: 20221206
